FAERS Safety Report 15279405 (Version 1)
Quarter: 2018Q3

REPORT INFORMATION
  Report Type: Spontaneous
  Country: US (occurrence: US)
  Receive Date: 20180730
  Receipt Date: 20180730
  Transmission Date: 20181010
  Serious: No
  Sender: FDA-Public Use
  Company Number: None

PATIENT
  Age: 47 Year
  Sex: Female

DRUGS (1)
  1. COPAXONE [Suspect]
     Active Substance: GLATIRAMER ACETATE
     Indication: MULTIPLE SCLEROSIS
     Route: 058
     Dates: start: 20170216

REACTIONS (7)
  - Injection site erythema [None]
  - Swelling [None]
  - Injection site swelling [None]
  - Erythema [None]
  - Pain [None]
  - Insomnia [None]
  - Injection site pain [None]

NARRATIVE: CASE EVENT DATE: 20180718
